FAERS Safety Report 5689561-2 (Version None)
Quarter: 2008Q1

REPORT INFORMATION
  Report Type: 
  Country: None (occurrence: None)
  Receive Date: 20080331
  Receipt Date: 20080325
  Transmission Date: 20080703
  Serious: Yes (Other)
  Sender: FDA-Public Use
  Company Number: JP-PFIZER INC-2008027443

PATIENT
  Age: 26 Year
  Sex: Female

DRUGS (2)
  1. SOLU-CORTEF [Suspect]
     Indication: URTICARIA
  2. MERCAZOLE [Concomitant]

REACTIONS (2)
  - ASTHMA [None]
  - SHOCK [None]
